FAERS Safety Report 8167497-5 (Version None)
Quarter: 2012Q1

REPORT INFORMATION
  Report Type: 
  Country: None (occurrence: None)
  Receive Date: 20120103
  Receipt Date: 20111007
  Transmission Date: 20120608
  Serious: No
  Sender: FDA-Public Use
  Company Number: AE-2011-002157

PATIENT
  Age: 59 Year
  Sex: Male
  Weight: 80.7403 kg

DRUGS (8)
  1. LOTREL [Concomitant]
  2. PEGASYS [Concomitant]
  3. DIOVAN [Concomitant]
  4. RIBAVIRIN [Concomitant]
  5. COREG [Concomitant]
  6. INCIVEK [Suspect]
     Dosage: 2250 MG (750 MG, 1 IN 8 HR)
     Dates: start: 20110930
  7. CARDURA [Concomitant]
  8. TRIPLIX (CHOLESTEROL- AND TRIGLYCERIDE REDUCERS) [Concomitant]

REACTIONS (1)
  - DECREASED APPETITE [None]
